FAERS Safety Report 4946943-1 (Version None)
Quarter: 2006Q1

REPORT INFORMATION
  Report Type: 
  Country: None (occurrence: None)
  Receive Date: 20060317
  Receipt Date: 20060308
  Transmission Date: 20060701
  Serious: Yes (Other)
  Sender: FDA-Public Use
  Company Number: US-ROCHE-439763

PATIENT
  Age: 10 Year
  Sex: Female
  Weight: 54.4 kg

DRUGS (2)
  1. TAMIFLU [Suspect]
     Route: 048
     Dates: start: 20060228, end: 20060309
  2. YASMIN [Suspect]
     Dosage: TAKEN DAILY ALSO TAKEN FOR OVARIAN CYST
     Route: 048
     Dates: start: 20060101, end: 20060307

REACTIONS (6)
  - DIZZINESS POSTURAL [None]
  - DRUG INTERACTION [None]
  - LOSS OF CONSCIOUSNESS [None]
  - OEDEMA PERIPHERAL [None]
  - ORTHOSTATIC HYPOTENSION [None]
  - RASH [None]
